FAERS Safety Report 8931955 (Version 1)
Quarter: 2012Q4

REPORT INFORMATION
  Report Type: 
  Country: US (occurrence: US)
  Receive Date: 20121128
  Receipt Date: 20121128
  Transmission Date: 20130627
  Serious: No
  Sender: FDA-Public Use
  Company Number: US-MYLANLABS-2011S1022487

PATIENT
  Sex: Male

DRUGS (3)
  1. LISINOPRIL [Suspect]
     Indication: BLOOD PRESSURE
  2. CLONIDINE [Suspect]
     Indication: BLOOD PRESSURE
  3. HYDROCHLOROTHIAZIDE [Suspect]
     Indication: BLOOD PRESSURE

REACTIONS (1)
  - Drug ineffective [Not Recovered/Not Resolved]
